FAERS Safety Report 5158123-8 (Version None)
Quarter: 2006Q4

REPORT INFORMATION
  Report Type: 
  Country: None (occurrence: None)
  Receive Date: 20061117
  Receipt Date: 20061101
  Transmission Date: 20070319
  Serious: Yes (Hospitalization)
  Sender: FDA-Public Use
  Company Number: 229681

PATIENT
  Age: 50 Year
  Sex: Female

DRUGS (7)
  1. HERCEPTIN [Suspect]
     Indication: BREAST CANCER
     Dosage: 106 MG, 1 WEEK, INTRAVENOUS
     Route: 042
     Dates: start: 20051026, end: 20060104
  2. TAXOTERE [Suspect]
     Indication: BREAST CANCER
     Dosage: 110 MG, INTRAVENOUS
     Route: 042
     Dates: start: 20051102, end: 20060104
  3. CISPLATIN [Suspect]
     Indication: BREAST CANCER
  4. CYCLOPHOSPHAMIDE [Suspect]
     Indication: BREAST CANCER
  5. EPIRUBICIN [Suspect]
     Indication: BREAST CANCER
  6. ETOPOSIDE [Suspect]
     Indication: BREAST CANCER
  7. FLUOROURACIL [Suspect]
     Indication: BREAST CANCER

REACTIONS (7)
  - ALVEOLITIS [None]
  - BLOOD PH INCREASED [None]
  - DISEASE PROGRESSION [None]
  - DYSPNOEA [None]
  - HYPERSENSITIVITY [None]
  - LUNG DISORDER [None]
  - PO2 INCREASED [None]
